FAERS Safety Report 5006769-X (Version None)
Quarter: 2006Q2

REPORT INFORMATION
  Report Type: 
  Country: None (occurrence: None)
  Receive Date: 20060519
  Receipt Date: 20060512
  Transmission Date: 20061013
  Serious: Yes (Other)
  Sender: FDA-Public Use
  Company Number: PHNU2006DE01950

PATIENT
  Sex: Female

DRUGS (1)
  1. SALAGEN [Suspect]
     Indication: DRY EYE
     Dosage: UP TO 4 TABLETS PER DAY
     Route: 048
     Dates: start: 20040101

REACTIONS (3)
  - DIARRHOEA [None]
  - GASTROINTESTINAL STROMAL TUMOUR [None]
  - HYPERHIDROSIS [None]
